FAERS Safety Report 11927884 (Version 4)
Quarter: 2016Q1

REPORT INFORMATION
  Report Type: Spontaneous
  Country: PL (occurrence: PL)
  Receive Date: 20160119
  Receipt Date: 20160229
  Transmission Date: 20160526
  Serious: Yes (Death)
  Sender: FDA-Public Use
  Company Number: PL-PFIZER INC-2016016475

PATIENT
  Age: 65 Year
  Sex: Female

DRUGS (7)
  1. DICLODUO [Concomitant]
     Active Substance: DICLOFENAC SODIUM
     Indication: PAIN
     Dosage: 75 MG, 1X/DAY
     Route: 048
  2. GASEC [Concomitant]
     Dosage: 1 DF, 1X/DAY
     Route: 048
  3. FAXOLET ER [Concomitant]
     Indication: NEURALGIA
     Dosage: 75 MG, 1X/DAY
     Route: 048
     Dates: start: 201303, end: 201305
  4. LYRICA [Suspect]
     Active Substance: PREGABALIN
     Indication: NEURALGIA
     Dosage: UNK
     Dates: start: 201204
  5. FAXOLET ER [Concomitant]
     Dosage: 150 MG, 1X/DAY
     Route: 048
     Dates: start: 201305, end: 201401
  6. GABAPENTIN TEVA [Suspect]
     Active Substance: GABAPENTIN
     Indication: NEURALGIA
     Dosage: 600 MG, 3X/DAY
     Route: 048
     Dates: start: 201211, end: 201401
  7. POLTRAM COMBO [Suspect]
     Active Substance: ACETAMINOPHEN\TRAMADOL HYDROCHLORIDE
     Indication: NEURALGIA
     Dosage: 1 DF, 3X/DAY
     Route: 048
     Dates: start: 201211, end: 201401

REACTIONS (8)
  - Balance disorder [Unknown]
  - Diverticulum intestinal [Unknown]
  - Hyperhidrosis [Recovered/Resolved]
  - Gastric disorder [Unknown]
  - Hyperhidrosis [Unknown]
  - Eyelid ptosis [Unknown]
  - Adenocarcinoma of colon [Fatal]
  - Eyelid oedema [Unknown]

NARRATIVE: CASE EVENT DATE: 2012
